FAERS Safety Report 9169315 (Version 3)
Quarter: 2013Q3

REPORT INFORMATION
  Report Type: Spontaneous
  Country: US (occurrence: US)
  Receive Date: 20130318
  Receipt Date: 20130924
  Transmission Date: 20140515
  Serious: Yes (Hospitalization)
  Sender: FDA-Public Use
  Company Number: US-B.I. PHARMACEUTICALS,INC./RIDGEFIELD-2013-BI-06714BP

PATIENT
  Age: 79 Year
  Sex: Male
  Weight: 81 kg

DRUGS (6)
  1. PRADAXA [Suspect]
     Indication: ANTICOAGULANT THERAPY
     Dosage: 300 MG
     Route: 048
     Dates: start: 20110706, end: 20110725
  2. PRADAXA [Suspect]
     Indication: ATRIAL FIBRILLATION
  3. UROCIT-K [Concomitant]
     Dosage: 3240 MG
     Route: 048
     Dates: start: 1995
  4. CARDURA [Concomitant]
     Dosage: 8 MG
     Route: 048
     Dates: start: 1998
  5. SOTALOL HCL [Concomitant]
     Dosage: 80 MG
     Route: 048
     Dates: start: 2011
  6. ZOLOFT [Concomitant]
     Dosage: 80 MG
     Route: 048

REACTIONS (2)
  - Lower gastrointestinal haemorrhage [Unknown]
  - Anaemia [Unknown]
